FAERS Safety Report 6821492-4 (Version None)
Quarter: 2010Q3

REPORT INFORMATION
  Report Type: 
  Country: None (occurrence: None)
  Receive Date: 20100707
  Receipt Date: 20080909
  Transmission Date: 20110219
  Serious: No
  Sender: FDA-Public Use
  Company Number: US-PFIZER INC-2008065197

PATIENT
  Sex: Male
  Weight: 27.727 kg

DRUGS (1)
  1. SERTRALINE HCL [Suspect]
     Indication: OBSESSIVE-COMPULSIVE DISORDER
     Dates: start: 20080705, end: 20080720

REACTIONS (5)
  - ABNORMAL BEHAVIOUR [None]
  - DIARRHOEA [None]
  - DRUG INEFFECTIVE [None]
  - DRY MOUTH [None]
  - IRRITABILITY [None]
